FAERS Safety Report 4866862-9 (Version None)
Quarter: 2005Q4

REPORT INFORMATION
  Report Type: 
  Country: None (occurrence: None)
  Receive Date: 20051222
  Receipt Date: 20051201
  Transmission Date: 20060501
  Serious: Yes (Other)
  Sender: FDA-Public Use
  Company Number: MX200512000468

PATIENT
  Age: 61 Year
  Sex: Female

DRUGS (9)
  1. FORTEO [Suspect]
     Indication: OSTEOPOROSIS
     Dosage: 20, DAILY (1/D),
  2. FUROSEMIDE [Concomitant]
  3. NIFEDIPINE [Concomitant]
  4. CALCIUM WITH VITAMIN D (CALCIUM PHOSPHATE, CALCIUM SODIUM LACTATE, ERG [Concomitant]
  5. ETORICOXIB (ETORICOXIB) [Concomitant]
  6. ERYTHROPOIETIN (ERYTHROPOIETIN) [Concomitant]
  7. HERRON OSTEO ESE (GLUCOSAMINE HYDROCHLORIDE) [Concomitant]
  8. LANTUS [Concomitant]
  9. LOSARTAN POTASSIUM [Concomitant]

REACTIONS (7)
  - APOPTOSIS [None]
  - CALCINOSIS [None]
  - LUMBAR VERTEBRAL FRACTURE [None]
  - METASTASES TO MUSCLE [None]
  - PELVIC FRACTURE [None]
  - PELVIC MASS [None]
  - UTERINE LEIOMYOMA [None]
